FAERS Safety Report 5135416-1 (Version None)
Quarter: 2006Q4

REPORT INFORMATION
  Report Type: 
  Country: None (occurrence: None)
  Receive Date: 20061026
  Receipt Date: 20061025
  Transmission Date: 20070319
  Serious: Yes (Hospitalization)
  Sender: FDA-Public Use
  Company Number: US-GLAXOSMITHKLINE-A0624941A

PATIENT
  Age: 71 Year

DRUGS (3)
  1. ADVAIR HFA [Suspect]
     Indication: CHRONIC OBSTRUCTIVE PULMONARY DISEASE
     Route: 055
  2. UNSPECIFIED MEDICATIONS [Concomitant]
  3. OXYGEN [Concomitant]

REACTIONS (3)
  - DYSPNOEA [None]
  - MALAISE [None]
  - MALNUTRITION [None]
